FAERS Safety Report 19836045 (Version 1)
Quarter: 2021Q3

REPORT INFORMATION
  Report Type: Spontaneous
  Country: US (occurrence: US)
  Receive Date: 20210915
  Receipt Date: 20210915
  Transmission Date: 20211014
  Serious: Yes (Other)
  Sender: FDA-Public Use
  Company Number: NVSC2021US205355

PATIENT
  Sex: Female

DRUGS (2)
  1. BEOVU [Suspect]
     Active Substance: BROLUCIZUMAB-DBLL
     Indication: NEOVASCULAR AGE-RELATED MACULAR DEGENERATION
     Dosage: 6 MG/KG, QMO
     Route: 047
     Dates: start: 20210811
  2. BEOVU [Suspect]
     Active Substance: BROLUCIZUMAB-DBLL
     Dosage: 6 MG/KG, QMO
     Route: 047
     Dates: start: 20210908

REACTIONS (3)
  - Visual acuity reduced [Unknown]
  - Eye pain [Unknown]
  - Uveitis [Unknown]

NARRATIVE: CASE EVENT DATE: 20210908
